FAERS Safety Report 6884523-1 (Version None)
Quarter: 2010Q3

REPORT INFORMATION
  Report Type: 
  Country: None (occurrence: None)
  Receive Date: 20100729
  Receipt Date: 20070712
  Transmission Date: 20110219
  Serious: Yes (Hospitalization, Other)
  Sender: FDA-Public Use
  Company Number: US-PFIZER INC-2007058300

PATIENT
  Sex: Male
  Weight: 88.5 kg

DRUGS (1)
  1. CELEBREX [Suspect]
     Indication: ARTHRITIS
     Dosage: FREQUENCY:1-2
     Dates: start: 20000101

REACTIONS (1)
  - CHEST PAIN [None]
